FAERS Safety Report 7390309-4 (Version None)
Quarter: 2011Q2

REPORT INFORMATION
  Report Type: 
  Country: None (occurrence: None)
  Receive Date: 20110401
  Receipt Date: 20110309
  Transmission Date: 20111010
  Serious: No
  Sender: FDA-Public Use
  Company Number: US-B.I. PHARMACEUTICALS,INC./RIDGEFIELD-2011-BP-02978BP

PATIENT
  Sex: Male

DRUGS (3)
  1. ATENOLOL [Concomitant]
  2. PRADAXA [Suspect]
     Indication: ATRIAL FIBRILLATION
     Dosage: 300 MG
     Route: 048
     Dates: start: 20101210, end: 20110223
  3. FOLIC ACID [Concomitant]

REACTIONS (3)
  - CHEST DISCOMFORT [None]
  - CHEST PAIN [None]
  - ABDOMINAL DISCOMFORT [None]
